FAERS Safety Report 26062075 (Version 1)
Quarter: 2025Q4

REPORT INFORMATION
  Report Type: Report from Study
  Country: US (occurrence: US)
  Receive Date: 20251119
  Receipt Date: 20251119
  Transmission Date: 20260118
  Serious: Yes (Hospitalization)
  Sender: ABBVIE
  Company Number: US-ABBVIE-6266837

PATIENT
  Age: 74 Year
  Sex: Male

DRUGS (1)
  1. SKYRIZI [Suspect]
     Active Substance: RISANKIZUMAB-RZAA
     Indication: Crohn^s disease
     Dosage: SKYRIZI 360 MG/2.4 ML (150 MG/ML) SINGLE DOSE PREFILLED CARTRIDGE
     Route: 058
     Dates: start: 20221123

REACTIONS (4)
  - Dyspepsia [Unknown]
  - Crohn^s disease [Recovered/Resolved]
  - Product storage error [Unknown]
  - Nasopharyngitis [Recovered/Resolved]

NARRATIVE: CASE EVENT DATE: 20250401
